FAERS Safety Report 5739612-1 (Version None)
Quarter: 2008Q2

REPORT INFORMATION
  Report Type: 
  Country: None (occurrence: None)
  Receive Date: 20080513
  Receipt Date: 20080424
  Transmission Date: 20081010
  Serious: Yes (Death)
  Sender: FDA-Public Use
  Company Number: A-CH2008-20378

PATIENT
  Sex: 0

DRUGS (1)
  1. BOSENTAN TABLET 62.5 MG EU(BOSENTAN) TABLET [Suspect]
     Indication: PULMONARY HYPERTENSION

REACTIONS (2)
  - HAEMOPTYSIS [None]
  - SHOCK [None]
